FAERS Safety Report 4992567-X (Version None)
Quarter: 2006Q1

REPORT INFORMATION
  Report Type: 
  Country: None (occurrence: None)
  Receive Date: 20060313
  Receipt Date: 20051202
  Transmission Date: 20060701
  Serious: Yes (Hospitalization)
  Sender: FDA-Public Use
  Company Number: PHEH2005US13152

PATIENT
  Sex: Female

DRUGS (1)
  1. TRILEPTAL [Suspect]
     Dosage: 300 MG, TID
     Dates: start: 20041130

REACTIONS (4)
  - BLOOD SODIUM DECREASED [None]
  - DISORIENTATION [None]
  - LETHARGY [None]
  - PNEUMONIA [None]
